FAERS Safety Report 8766717 (Version 1)
Quarter: 2012Q4

REPORT INFORMATION
  Report Type: 
  Country: CN (occurrence: CN)
  Receive Date: 20120904
  Receipt Date: 20120904
  Transmission Date: 20130627
  Serious: Yes (Death)
  Sender: FDA-Public Use
  Company Number: CN-JNJFOC-20120814180

PATIENT
  Age: 21 Year
  Sex: Female

DRUGS (1)
  1. TYLENOL [Suspect]
     Indication: EMOTIONAL DISORDER
     Route: 048

REACTIONS (3)
  - Toxicity to various agents [Fatal]
  - Coma [Fatal]
  - Overdose [Fatal]
